FAERS Safety Report 5905816-8 (Version None)
Quarter: 2008Q4

REPORT INFORMATION
  Report Type: 
  Country: None (occurrence: None)
  Receive Date: 20081002
  Receipt Date: 20080929
  Transmission Date: 20090506
  Serious: Yes (Hospitalization)
  Sender: FDA-Public Use
  Company Number: B0538665A

PATIENT
  Age: 57 Year
  Sex: Male

DRUGS (5)
  1. ZEFIX [Suspect]
     Indication: HEPATITIS B ANTIBODY POSITIVE
     Dosage: 100MG PER DAY
     Route: 048
     Dates: start: 20050101
  2. CYCLOSPORINE [Suspect]
     Route: 065
     Dates: start: 20050101
  3. ANTI-THYMOCYTE GLOBULIN NOS [Suspect]
     Route: 065
     Dates: start: 20050101
  4. STEROID [Suspect]
     Route: 065
     Dates: start: 20050101
  5. NEUPOGEN [Suspect]
     Route: 065
     Dates: start: 20050101

REACTIONS (5)
  - FOCAL SEGMENTAL GLOMERULOSCLEROSIS [None]
  - HYPERALBUMINAEMIA [None]
  - HYPERCHOLESTEROLAEMIA [None]
  - OEDEMA [None]
  - PROTEINURIA [None]
